FAERS Safety Report 12988160 (Version 1)
Quarter: 2016Q4

REPORT INFORMATION
  Report Type: Report from Study
  Country: JP (occurrence: JP)
  Receive Date: 20161130
  Receipt Date: 20161130
  Transmission Date: 20170207
  Serious: Yes (Other)
  Sender: FDA-Public Use
  Company Number: JP-SA-2016SA089005

PATIENT
  Age: 12 Month
  Sex: Male

DRUGS (4)
  1. CYCLOSPORIN A [Suspect]
     Active Substance: CYCLOSPORINE
     Indication: IMMUNOSUPPRESSANT DRUG THERAPY
     Dosage: DOSE: 6MG/KG AND THEN ADJUSTED TO 100-200 NG/ML; THROUGH BLOOD LEVELS; DAYS 1-5
     Route: 048
  2. ANTI-THYMOCYTE GLOBULIN (RABBIT) [Suspect]
     Active Substance: LAPINE T-LYMPHOCYTE IMMUNE GLOBULIN
     Indication: IMMUNOSUPPRESSANT DRUG THERAPY
     Route: 065
  3. ANTI-THYMOCYTE GLOBULIN (RABBIT) [Suspect]
     Active Substance: LAPINE T-LYMPHOCYTE IMMUNE GLOBULIN
     Indication: APLASTIC ANAEMIA
     Route: 065
  4. CYCLOSPORIN A [Suspect]
     Active Substance: CYCLOSPORINE
     Indication: APLASTIC ANAEMIA
     Dosage: DOSE: 6MG/KG AND THEN ADJUSTED TO 100-200 NG/ML; THROUGH BLOOD LEVELS; DAYS 1-5
     Route: 048

REACTIONS (2)
  - Drug ineffective [Unknown]
  - Immune thrombocytopenic purpura [Recovered/Resolved]
